FAERS Safety Report 10012207 (Version 1)
Quarter: 2014Q1

REPORT INFORMATION
  Report Type: Spontaneous
  Country: FR (occurrence: FR)
  Receive Date: 20140314
  Receipt Date: 20140314
  Transmission Date: 20141002
  Serious: Yes (Hospitalization)
  Sender: FDA-Public Use
  Company Number: PHHY2014FR028668

PATIENT
  Age: 57 Year
  Sex: Male

DRUGS (8)
  1. ESIDREX [Suspect]
     Dosage: 0.5 DF (12.5MG), DAILY
     Route: 048
  2. METFORMIN [Suspect]
     Dosage: 850 MG, TID
     Route: 048
  3. SPIRONOLACTONE-ALTIZIDE [Suspect]
     Dosage: 1 DF (25MG SPIRO AND 15MG ALTI), QD
     Route: 048
  4. ZOLPIDEM [Suspect]
     Dosage: 10 MG, AS NEEDED
     Route: 048
  5. TRAVATAN [Suspect]
     Dosage: 1 GTT (40UG/ML), TID
     Route: 047
  6. PONATINIB [Suspect]
     Indication: CHRONIC MYELOID LEUKAEMIA
     Dosage: 30 MG, DAILY
     Route: 048
     Dates: start: 201212
  7. COVERAM [Suspect]
     Dosage: 1 DF (10MG AMLO AND 10MG PERI), QD
     Route: 048
  8. KARDEGIC [Suspect]
     Dosage: 75 MG, QD
     Route: 048

REACTIONS (2)
  - Retroperitoneal fibrosis [Not Recovered/Not Resolved]
  - Abdominal pain [Unknown]
